FAERS Safety Report 5178963-9 (Version None)
Quarter: 2006Q4

REPORT INFORMATION
  Report Type: 
  Country: None (occurrence: None)
  Receive Date: 20061219
  Receipt Date: 20060825
  Transmission Date: 20070319
  Serious: Yes (Hospitalization, Other)
  Sender: FDA-Public Use
  Company Number: US-BAYER-200615272BWH

PATIENT
  Age: 47 Year
  Sex: Female
  Weight: 109 kg

DRUGS (12)
  1. SORAFENIB [Suspect]
     Indication: HEPATIC NEOPLASM MALIGNANT
     Dosage: TOTAL DAILY DOSE: 400 MG  UNIT DOSE: 200 MG
     Route: 048
     Dates: start: 20060719, end: 20060727
  2. SORAFENIB [Suspect]
     Dosage: TOTAL DAILY DOSE: 400 MG  UNIT DOSE: 200 MG
     Route: 048
     Dates: start: 20060906
  3. SORAFENIB [Suspect]
     Dosage: UNIT DOSE: 200 MG
     Route: 048
     Dates: start: 20060531
  4. DOXORUBICIN HCL [Suspect]
     Indication: HEPATIC NEOPLASM MALIGNANT
     Route: 042
     Dates: start: 20060906
  5. DOXORUBICIN HCL [Suspect]
     Route: 042
     Dates: start: 20060719, end: 20060719
  6. DOXORUBICIN HCL [Suspect]
     Dates: start: 20060531
  7. ZOFRAN [Concomitant]
     Indication: NAUSEA
  8. LORAZEPAM [Concomitant]
     Indication: INSOMNIA
  9. FENTANYL [Concomitant]
     Indication: PAIN
  10. COLACE [Concomitant]
     Indication: CONSTIPATION PROPHYLAXIS
  11. VICODIN [Concomitant]
     Indication: PAIN
  12. SENOKOT [Concomitant]
     Indication: LAXATIVE SUPPORTIVE CARE

REACTIONS (9)
  - ABDOMINAL PAIN [None]
  - CONSTIPATION [None]
  - DIARRHOEA [None]
  - DISEASE PROGRESSION [None]
  - DYSPNOEA [None]
  - MALIGNANT NEOPLASM PROGRESSION [None]
  - NAUSEA [None]
  - NEUTROPHIL COUNT DECREASED [None]
  - VOMITING [None]
